FAERS Safety Report 6374739-5 (Version None)
Quarter: 2009Q3

REPORT INFORMATION
  Report Type: 
  Country: None (occurrence: None)
  Receive Date: 20090924
  Receipt Date: 20090915
  Transmission Date: 20100115
  Serious: Yes (Other)
  Sender: FDA-Public Use
  Company Number: PHHY2009JP33168

PATIENT
  Age: 6 Year
  Sex: Male

DRUGS (2)
  1. TEGRETOL [Suspect]
     Indication: HEADACHE
     Dosage: UNK
     Route: 048
  2. TEGRETOL [Suspect]
     Dosage: 0.3 G DAILY
     Dates: start: 20090301

REACTIONS (1)
  - JUVENILE ARTHRITIS [None]
